FAERS Safety Report 14195724 (Version 1)
Quarter: 2017Q4

REPORT INFORMATION
  Report Type: Spontaneous
  Country: US (occurrence: US)
  Receive Date: 20171116
  Receipt Date: 20171116
  Transmission Date: 20180321
  Serious: No
  Sender: FDA-Public Use
  Company Number: US-BAUSCH-BL-2017-013848

PATIENT
  Sex: Female

DRUGS (3)
  1. TETRABENAZINE. [Suspect]
     Active Substance: TETRABENAZINE
     Indication: TOURETTE^S DISORDER
     Dates: start: 20161207
  2. XENAZINE [Suspect]
     Active Substance: TETRABENAZINE
     Indication: TOURETTE^S DISORDER
     Route: 048
     Dates: start: 20161212
  3. TETRABENAZINE. [Suspect]
     Active Substance: TETRABENAZINE
     Dates: start: 201704

REACTIONS (3)
  - Weight increased [Unknown]
  - Drug ineffective [Unknown]
  - Product use in unapproved indication [Unknown]
